FAERS Safety Report 4846349-X (Version None)
Quarter: 2005Q4

REPORT INFORMATION
  Report Type: 
  Country: None (occurrence: None)
  Receive Date: 20051202
  Receipt Date: 20051202
  Transmission Date: 20060501
  Serious: Yes (Hospitalization)
  Sender: FDA-Public Use
  Company Number: None

PATIENT
  Age: 56 Year
  Sex: Female
  Weight: 186.4284 kg

DRUGS (31)
  1. CARBAMAZEPINE [Suspect]
     Dosage: 200 MG ONCE DAILY PO
     Route: 048
     Dates: end: 20051105
  2. DULOXETINE 60 MG PO DAILY LILLY [Suspect]
     Dosage: 60 MG ONCE DAILY PO
     Route: 048
     Dates: start: 20050924, end: 20051105
  3. LOVASTATIN [Concomitant]
  4. LASIX [Concomitant]
  5. PREVACID [Concomitant]
  6. FERROUS SULFATE TAB [Concomitant]
  7. MUCINEX [Concomitant]
  8. NEURONTIN [Concomitant]
  9. QUININE SULFATE [Concomitant]
  10. OXYBUTYNIN [Concomitant]
  11. LOMOTIL [Concomitant]
  12. NORVASC [Concomitant]
  13. QUINAPRIL [Concomitant]
  14. ASPIRIN [Concomitant]
  15. ACTOS [Concomitant]
  16. SPIRONOLACTONE/HYDROCHLOROTHIAZIDE [Concomitant]
  17. METOLAZONE [Concomitant]
  18. KLOR-CON [Concomitant]
  19. ADVAIR DISKUS 500/50 [Concomitant]
  20. HYDROMET SYRUP [Concomitant]
  21. ALBUTEROL [Concomitant]
  22. ALBUTEROL [Concomitant]
  23. ATROVENT [Concomitant]
  24. OXYCODONE [Concomitant]
  25. OTIC EAR DROPS [Concomitant]
  26. DOCUSATE [Concomitant]
  27. LIDODERM PATCH [Concomitant]
  28. LANTUS [Concomitant]
  29. HUMALOG [Concomitant]
  30. BENADRYL [Concomitant]
  31. SLNG [Concomitant]

REACTIONS (7)
  - AGITATION [None]
  - CRYING [None]
  - DELIRIUM [None]
  - DYSARTHRIA [None]
  - RESTLESSNESS [None]
  - SOMNOLENCE [None]
  - SPEECH DISORDER [None]
